FAERS Safety Report 11147220 (Version 1)
Quarter: 2015Q2

REPORT INFORMATION
  Report Type: Spontaneous
  Country: US (occurrence: US)
  Receive Date: 20150528
  Receipt Date: 20150528
  Transmission Date: 20150821
  Serious: No
  Sender: FDA-Public Use
  Company Number: US-GLAXOSMITHKLINE-US2015072691

PATIENT
  Sex: Female

DRUGS (1)
  1. BENLYSTA [Suspect]
     Active Substance: BELIMUMAB
     Indication: SYSTEMIC LUPUS ERYTHEMATOSUS
     Dosage: UNK, CYC
     Dates: start: 20150511

REACTIONS (5)
  - Infusion site haemorrhage [Recovered/Resolved]
  - Stress [Not Recovered/Not Resolved]
  - Injection site bruising [Recovering/Resolving]
  - Pain [Not Recovered/Not Resolved]
  - Vein collapse [Not Recovered/Not Resolved]

NARRATIVE: CASE EVENT DATE: 20150511
